FAERS Safety Report 9617398 (Version 3)
Quarter: 2014Q1

REPORT INFORMATION
  Report Type: Spontaneous
  Country: US (occurrence: None)
  Receive Date: 20131009
  Receipt Date: 20140114
  Transmission Date: 20141002
  Serious: Yes (Hospitalization, Other)
  Sender: FDA-Public Use
  Company Number: ADR-2013-01787

PATIENT
  Age: 55 Year
  Sex: Male

DRUGS (2)
  1. BACLOFEN [Suspect]
     Indication: CANCER PAIN
     Dosage: 52.46 MCG/DAY
  2. DILAUDID [Suspect]
     Indication: CANCER PAIN
     Dosage: .6995 MG/DAY

REACTIONS (4)
  - Back disorder [None]
  - Mass [None]
  - Cerebrospinal fluid leakage [None]
  - Implant site swelling [None]
